FAERS Safety Report 16001323 (Version 1)
Quarter: 2019Q1

REPORT INFORMATION
  Report Type: Spontaneous
  Country: RO (occurrence: RO)
  Receive Date: 20190225
  Receipt Date: 20190225
  Transmission Date: 20190418
  Serious: Yes (Death)
  Sender: FDA-Public Use
  Company Number: RO-ASTRAZENECA-2019SE30131

PATIENT
  Age: 80 Year
  Sex: Male

DRUGS (5)
  1. ASA [Concomitant]
     Active Substance: ASPIRIN
     Indication: STENT PLACEMENT
  2. INSULIN [Concomitant]
     Active Substance: INSULIN NOS
  3. BRILIQUE [Suspect]
     Active Substance: TICAGRELOR
     Indication: MYOCARDIAL INFARCTION
     Route: 048
  4. ASA [Concomitant]
     Active Substance: ASPIRIN
     Indication: MYOCARDIAL INFARCTION
  5. BRILIQUE [Suspect]
     Active Substance: TICAGRELOR
     Indication: STENT PLACEMENT
     Route: 048

REACTIONS (1)
  - Cardio-respiratory arrest [Fatal]
